FAERS Safety Report 8000130-1 (Version None)
Quarter: 2011Q4

REPORT INFORMATION
  Report Type: 
  Country: None (occurrence: None)
  Receive Date: 20111220
  Receipt Date: 20111220
  Transmission Date: 20120403
  Serious: Yes (Other)
  Sender: FDA-Public Use
  Company Number: None

PATIENT
  Age: 28 Year
  Sex: Female
  Weight: 109.7705 kg

DRUGS (1)
  1. CHORIONIC GONADOTROPIN [Suspect]
     Indication: OVERWEIGHT
     Dosage: 5 DROPS 3 TIMES A DAY ORAL
     Route: 048
     Dates: start: 20110503, end: 20110517

REACTIONS (8)
  - TREMOR [None]
  - BLOOD GLUCOSE INCREASED [None]
  - HYPERSOMNIA [None]
  - THYROID DISORDER [None]
  - ASTHENIA [None]
  - DISTURBANCE IN ATTENTION [None]
  - INSOMNIA [None]
  - IMPAIRED DRIVING ABILITY [None]
